FAERS Safety Report 23856139 (Version 3)
Quarter: 2024Q2

REPORT INFORMATION
  Report Type: Spontaneous
  Country: AR (occurrence: AR)
  Receive Date: 20240515
  Receipt Date: 20240628
  Transmission Date: 20240716
  Serious: Yes (Other)
  Sender: FDA-Public Use
  Company Number: AR-ROCHE-3561374

PATIENT
  Age: 50 Year
  Sex: Female

DRUGS (18)
  1. RITUXIMAB [Suspect]
     Active Substance: RITUXIMAB
     Indication: Follicular lymphoma
     Dosage: DOSE: 375MG M2, 6 CYCLES
     Route: 065
     Dates: start: 201704, end: 201802
  2. RITUXIMAB [Suspect]
     Active Substance: RITUXIMAB
     Dosage: 375MG M2, 6 CYCLES
     Route: 065
     Dates: start: 201904, end: 201909
  3. RITUXIMAB [Suspect]
     Active Substance: RITUXIMAB
     Dosage: 3 CYCLES
     Route: 065
     Dates: start: 2023
  4. RITUXIMAB [Suspect]
     Active Substance: RITUXIMAB
     Dosage: 375MG M2, FREQUENCY WAS NOT REPORTED
     Route: 042
     Dates: start: 202402, end: 202405
  5. CYCLOPHOSPHAMIDE [Concomitant]
     Active Substance: CYCLOPHOSPHAMIDE
     Indication: Follicular lymphoma
     Dosage: DOSE: 750MG MG2, 6 CYLES
     Route: 042
     Dates: start: 201704, end: 201802
  6. DOXORUBICIN [Concomitant]
     Active Substance: DOXORUBICIN
     Indication: Follicular lymphoma
     Dosage: DOSE: 50MG M2
     Route: 042
     Dates: start: 201704, end: 201802
  7. DOXORUBICIN [Concomitant]
     Active Substance: DOXORUBICIN
     Dosage: 10MG M2
     Route: 042
     Dates: start: 202402, end: 202405
  8. VINCRISTINE [Concomitant]
     Active Substance: VINCRISTINE
     Indication: Follicular lymphoma
     Dosage: DPSE: 2MG M2, 6 CYLES
     Route: 042
     Dates: start: 201704, end: 201802
  9. PREDNISONE [Concomitant]
     Active Substance: PREDNISONE
  10. BENDAMUSTINE [Concomitant]
     Active Substance: BENDAMUSTINE
     Dosage: DOSE 375MG M2 , 6 CYCLES
     Route: 042
     Dates: start: 201904, end: 201909
  11. ETOPOSIDE [Concomitant]
     Active Substance: ETOPOSIDE
     Dosage: 40MG M2, 1-4 EVERY 28 DAYS
     Route: 042
     Dates: start: 202009, end: 202104
  12. METHYLPREDNISOLONE [Concomitant]
     Active Substance: METHYLPREDNISOLONE
     Route: 048
     Dates: start: 201704, end: 201802
  13. METHYLPREDNISOLONE [Concomitant]
     Active Substance: METHYLPREDNISOLONE
     Dosage: FREQUENCY WAS NOT REPORTED
     Route: 042
     Dates: start: 202009, end: 202104
  14. CYTARABINE [Concomitant]
     Active Substance: CYTARABINE
     Dosage: 2G M2, FREQUENCY WAS NOT REPORTED
     Route: 042
     Dates: start: 202009, end: 202104
  15. CISPLATIN [Concomitant]
     Active Substance: CISPLATIN
     Dosage: 25MG M2 / 1-4 EVERY 28 DAYS
     Route: 042
     Dates: start: 202009, end: 202104
  16. GEMCITABINE [Concomitant]
     Active Substance: GEMCITABINE
     Dosage: 4000MG M2, FREQUENCY WAS NOT REPORTED
     Route: 042
     Dates: start: 202402, end: 202405
  17. VINORELBINE [Concomitant]
     Active Substance: VINORELBINE TARTRATE
     Dosage: 20MG M2 / 8
     Route: 042
     Dates: start: 202402, end: 202405
  18. DOXORUBICIN [Concomitant]
     Active Substance: DOXORUBICIN

REACTIONS (8)
  - Osteolysis [Recovered/Resolved]
  - Abdominal lymphadenopathy [Unknown]
  - Bone lesion [Unknown]
  - Non-Hodgkin^s lymphoma [Unknown]
  - Therapy partial responder [Unknown]
  - Treatment failure [Unknown]
  - Therapy partial responder [Unknown]
  - Disease progression [Unknown]

NARRATIVE: CASE EVENT DATE: 20190101
